FAERS Safety Report 11543025 (Version 2)
Quarter: 2015Q3

REPORT INFORMATION
  Report Type: Spontaneous
  Country: FR (occurrence: FR)
  Receive Date: 20150923
  Receipt Date: 20150924
  Transmission Date: 20151125
  Serious: Yes (Death, Other)
  Sender: FDA-Public Use
  Company Number: FR-ELI_LILLY_AND_COMPANY-FR201508008859

PATIENT
  Age: 60 Year
  Sex: Female
  Weight: 47 kg

DRUGS (9)
  1. FOLIC ACID. [Concomitant]
     Active Substance: FOLIC ACID
     Indication: PREMEDICATION
     Dosage: UNK, CYCLICAL
     Route: 065
  2. CISPLATINE [Concomitant]
     Active Substance: CISPLATIN
     Indication: CHEMOTHERAPY
     Dosage: 75 MG/M2, EVERY THREE WEEKS
     Route: 042
     Dates: start: 20150721, end: 20150721
  3. DEXAMETHASONE. [Concomitant]
     Active Substance: DEXAMETHASONE
     Indication: PREMEDICATION
  4. EMEND [Concomitant]
     Active Substance: APREPITANT
     Indication: ANTIEMETIC SUPPORTIVE CARE
     Dosage: 125 MG, UNKNOWN
     Route: 042
     Dates: start: 20150720, end: 20150722
  5. VITAMIN B12 [Concomitant]
     Active Substance: CYANOCOBALAMIN
     Indication: PREMEDICATION
     Dosage: UNK, CYCLICAL
     Route: 030
  6. DEXAMETHASONE. [Concomitant]
     Active Substance: DEXAMETHASONE
     Indication: ANTIEMETIC SUPPORTIVE CARE
     Dosage: 8 MG, UNKNOWN
     Route: 042
     Dates: start: 20150720, end: 20150722
  7. ALIMTA [Suspect]
     Active Substance: PEMETREXED DISODIUM
     Indication: LUNG ADENOCARCINOMA STAGE IV
     Dosage: 500 MG/M2, EVERY THREE WEEKS
     Route: 065
     Dates: start: 20150721, end: 20150721
  8. ONDANSETRON [Concomitant]
     Active Substance: ONDANSETRON
     Indication: ANTIEMETIC SUPPORTIVE CARE
     Dosage: 8 MG, UNKNOWN
     Route: 042
     Dates: start: 20150721, end: 20150721
  9. EMEND [Concomitant]
     Active Substance: APREPITANT
     Dosage: 80 MG, UNKNOWN
     Route: 042
     Dates: start: 20150720, end: 20150722

REACTIONS (9)
  - Febrile bone marrow aplasia [Not Recovered/Not Resolved]
  - Alanine aminotransferase increased [Unknown]
  - Gamma-glutamyltransferase increased [Unknown]
  - Sepsis [Not Recovered/Not Resolved]
  - Creatinine renal clearance decreased [Unknown]
  - Septic shock [Fatal]
  - Blood creatinine increased [Unknown]
  - Chest X-ray abnormal [Unknown]
  - Aspartate aminotransferase increased [Unknown]

NARRATIVE: CASE EVENT DATE: 20150730
